FAERS Safety Report 6369386-5 (Version None)
Quarter: 2009Q3

REPORT INFORMATION
  Report Type: 
  Country: None (occurrence: None)
  Receive Date: 20090917
  Receipt Date: 20090902
  Transmission Date: 20100115
  Serious: Yes (Death)
  Sender: FDA-Public Use
  Company Number: AE 2009-106

PATIENT
  Age: 56 Year
  Sex: Male

DRUGS (1)
  1. FAZACLO ODT [Suspect]
     Dosage: 25 MG DAILY PO
     Route: 048
     Dates: start: 20090720, end: 20090817

REACTIONS (2)
  - CHOKING [None]
  - MYOCARDIAL INFARCTION [None]
